FAERS Safety Report 8777156 (Version 1)
Quarter: 2012Q4

REPORT INFORMATION
  Report Type: 
  Country: BR (occurrence: BR)
  Receive Date: 20120911
  Receipt Date: 20120911
  Transmission Date: 20130627
  Serious: Yes (Other)
  Sender: FDA-Public Use
  Company Number: BR-AMGEN-BRASP2012056851

PATIENT
  Age: 42 Year
  Sex: Female
  Weight: 62 kg

DRUGS (4)
  1. ENBREL [Suspect]
     Indication: PSORIATIC ARTHROPATHY
     Dosage: 50 mg, once weekly
     Route: 058
     Dates: start: 201104, end: 201208
  2. ENBREL [Suspect]
     Dosage: UNK
     Dates: start: 2011
  3. PRAVASTATIN [Concomitant]
     Indication: BLOOD CHOLESTEROL INCREASED
     Dosage: 10 mg, UNK
  4. HUMIRA [Concomitant]
     Dosage: UNK

REACTIONS (11)
  - Arteriosclerosis coronary artery [Unknown]
  - Hypertension [Unknown]
  - Weight increased [Unknown]
  - Calcification of muscle [Unknown]
  - Heart rate abnormal [Unknown]
  - Arthralgia [Unknown]
  - Drug ineffective [Unknown]
  - Psoriasis [Unknown]
  - Aspartate aminotransferase increased [Unknown]
  - Alanine aminotransferase increased [Unknown]
  - Injection site pain [Unknown]
